FAERS Safety Report 4556634-7 (Version None)
Quarter: 2005Q1

REPORT INFORMATION
  Report Type: 
  Country: None (occurrence: None)
  Receive Date: 20050114
  Receipt Date: 20050105
  Transmission Date: 20050727
  Serious: Yes (Other)
  Sender: FDA-Public Use
  Company Number: 2005006500

PATIENT
  Age: 78 Year
  Sex: Female
  Weight: 210 kg

DRUGS (3)
  1. CELEBREX [Suspect]
     Indication: ARTHRITIS
     Dosage: 200 MG (200 MG, 1 IN 1 D), ORAL
     Route: 048
     Dates: end: 20041201
  2. POTASSIUM (POTASSIUM) [Concomitant]
  3. FUROSEMIDE [Concomitant]

REACTIONS (1)
  - HEART RATE IRREGULAR [None]
